FAERS Safety Report 9770281 (Version 2)
Quarter: 2014Q1

REPORT INFORMATION
  Report Type: Report from Study
  Country: TW (occurrence: TW)
  Receive Date: 20131218
  Receipt Date: 20140116
  Transmission Date: 20141002
  Serious: Yes (Other)
  Sender: FDA-Public Use
  Company Number: TW-ABBVIE-13P-153-1179063-00

PATIENT
  Age: 50 Year
  Sex: Male
  Weight: 65 kg

DRUGS (4)
  1. HUMIRA [Suspect]
     Indication: PSORIASIS
     Route: 058
     Dates: start: 20120405, end: 20131209
  2. HUMIRA [Suspect]
     Dates: start: 20131230
  3. MTX [Concomitant]
     Indication: PSORIASIS
     Route: 048
  4. DAIVOBET [Concomitant]
     Indication: PSORIASIS
     Route: 061

REACTIONS (3)
  - Animal bite [Recovered/Resolved]
  - Wound [Recovered/Resolved]
  - Pain [Recovered/Resolved]
